FAERS Safety Report 7657518-8 (Version None)
Quarter: 2011Q3

REPORT INFORMATION
  Report Type: 
  Country: None (occurrence: None)
  Receive Date: 20110804
  Receipt Date: 20110722
  Transmission Date: 20111222
  Serious: Yes (Hospitalization, Other)
  Sender: FDA-Public Use
  Company Number: PHEH2006US15272

PATIENT
  Sex: Male

DRUGS (22)
  1. PERCOCET [Concomitant]
  2. CLONIDINE [Concomitant]
  3. MELPHALAN HYDROCHLORIDE [Concomitant]
  4. NORVASC [Concomitant]
  5. FERROUS SULFATE TAB [Concomitant]
  6. CIPROFLAXACIN [Concomitant]
  7. ZOMETA [Suspect]
     Indication: MULTIPLE MYELOMA
  8. AMBIEN [Concomitant]
  9. HYDROCHLOROTHIAZIDE [Concomitant]
  10. LISINOPRIL [Concomitant]
  11. AREDIA [Suspect]
  12. AMITRIPTYLINE HCL [Concomitant]
  13. DIOVAN [Concomitant]
     Indication: HYPERTENSION
  14. LIPITOR [Concomitant]
  15. COLACE [Concomitant]
  16. OXYCODONE HCL AND ACETAMINOPHEN [Concomitant]
  17. AMOXICILLIN [Concomitant]
  18. NEURONTIN [Concomitant]
  19. TRAZODONE HYDROCHLORIDE [Concomitant]
  20. FIORICET [Concomitant]
  21. KLONOPIN [Concomitant]
  22. DILTIAZEM [Concomitant]

REACTIONS (46)
  - ANAEMIA [None]
  - VIITH NERVE PARALYSIS [None]
  - SUBCUTANEOUS ABSCESS [None]
  - BLOOD ALKALINE PHOSPHATASE INCREASED [None]
  - CELLULITIS [None]
  - MUSCULAR WEAKNESS [None]
  - ANXIETY [None]
  - TOOTH INFECTION [None]
  - MENISCUS LESION [None]
  - TENDONITIS [None]
  - INTERVERTEBRAL DISC DEGENERATION [None]
  - OSTEONECROSIS OF JAW [None]
  - PAIN [None]
  - DECREASED INTEREST [None]
  - ARTHRALGIA [None]
  - INTERVERTEBRAL DISC SPACE NARROWING [None]
  - BLOOD GLUCOSE INCREASED [None]
  - CEREBRAL INFARCTION [None]
  - FASCIITIS [None]
  - HYPERTENSION [None]
  - DEEP VEIN THROMBOSIS [None]
  - TENDERNESS [None]
  - POST CONCUSSION SYNDROME [None]
  - SINUS TARSI SYNDROME [None]
  - OSTEOARTHRITIS [None]
  - POST THROMBOTIC SYNDROME [None]
  - TRICUSPID VALVE INCOMPETENCE [None]
  - CEREBROVASCULAR ACCIDENT [None]
  - SINUS BRADYCARDIA [None]
  - SWELLING [None]
  - JOINT RANGE OF MOTION DECREASED [None]
  - GAIT DISTURBANCE [None]
  - NEURITIS [None]
  - BURSITIS [None]
  - OROPHARYNGEAL PAIN [None]
  - ACUTE POLYNEUROPATHY [None]
  - OSTEOMYELITIS [None]
  - OEDEMA PERIPHERAL [None]
  - SCOLIOSIS [None]
  - CEREBRAL ARTERIOSCLEROSIS [None]
  - CARDIAC VALVE VEGETATION [None]
  - LEFT VENTRICULAR HYPERTROPHY [None]
  - GENERAL PHYSICAL HEALTH DETERIORATION [None]
  - PRIMARY SEQUESTRUM [None]
  - JOINT SWELLING [None]
  - HYPONATRAEMIA [None]
